FAERS Safety Report 7310834-1 (Version None)
Quarter: 2011Q1

REPORT INFORMATION
  Report Type: 
  Country: None (occurrence: None)
  Receive Date: 20110224
  Receipt Date: 20110209
  Transmission Date: 20110831
  Serious: No
  Sender: FDA-Public Use
  Company Number: US-PFIZER INC-US-WYE-H17570010

PATIENT
  Sex: Female
  Weight: 68 kg

DRUGS (5)
  1. PRISTIQ [Suspect]
     Indication: DEPRESSED MOOD
     Dosage: 50.0 MG, 1X/DAY
     Route: 065
     Dates: start: 20100801
  2. ZOLOFT [Suspect]
     Indication: IRRITABILITY
  3. PRISTIQ [Suspect]
     Indication: MENOPAUSAL SYMPTOMS
  4. ZOLOFT [Suspect]
     Indication: INSOMNIA
     Dosage: 100.0 MG, 1X/DAY
     Route: 065
     Dates: end: 20100801
  5. FEXOFENADINE [Concomitant]

REACTIONS (5)
  - DIZZINESS [None]
  - DRUG DOSE OMISSION [None]
  - MALAISE [None]
  - PYREXIA [None]
  - POOR QUALITY SLEEP [None]
